FAERS Safety Report 4433381-3 (Version None)
Quarter: 2004Q3

REPORT INFORMATION
  Report Type: 
  Country: None (occurrence: None)
  Receive Date: 20040824
  Receipt Date: 20040816
  Transmission Date: 20050211
  Serious: Yes (Life-Threatening)
  Sender: FDA-Public Use
  Company Number: 2004PK01190

PATIENT
  Age: 51 Year
  Sex: Male
  Weight: 56 kg

DRUGS (7)
  1. NEXIUM [Suspect]
     Indication: GASTRITIS EROSIVE
     Dosage: 40 MG DAILY PO
     Route: 048
     Dates: start: 20040609, end: 20040612
  2. NEXIUM [Suspect]
     Indication: REFLUX OESOPHAGITIS
     Dosage: 40 MG DAILY PO
     Route: 048
     Dates: start: 20040609, end: 20040612
  3. PANTOPRAZOLE SODIUM [Concomitant]
  4. LUDIOMIL [Concomitant]
  5. MORPHINE SULFATE [Concomitant]
  6. INSULIN RAPID [Concomitant]
  7. ISOPTIN [Concomitant]

REACTIONS (6)
  - DEPRESSED LEVEL OF CONSCIOUSNESS [None]
  - FALL [None]
  - HYPERHIDROSIS [None]
  - LOSS OF CONSCIOUSNESS [None]
  - MOTOR DYSFUNCTION [None]
  - SOMNOLENCE [None]
